FAERS Safety Report 6715018-3 (Version None)
Quarter: 2010Q2

REPORT INFORMATION
  Report Type: 
  Country: None (occurrence: None)
  Receive Date: 20100507
  Receipt Date: 20100427
  Transmission Date: 20101027
  Serious: Yes (Other)
  Sender: FDA-Public Use
  Company Number: BE-JNJFOC-20100407953

PATIENT
  Age: 38 Year
  Sex: Female

DRUGS (1)
  1. REMICADE [Suspect]
     Indication: CROHN'S DISEASE
     Dosage: FIRST INFUSION 19-MAR-2010; SECOND INFUSION 01-APR-2010
     Route: 042

REACTIONS (3)
  - DYSAESTHESIA [None]
  - PAIN IN EXTREMITY [None]
  - SENSATION OF HEAVINESS [None]
